FAERS Safety Report 23171975 (Version 1)
Quarter: 2023Q4

REPORT INFORMATION
  Report Type: Spontaneous
  Country: IT (occurrence: IT)
  Receive Date: 20231110
  Receipt Date: 20231110
  Transmission Date: 20240110
  Serious: Yes (Death)
  Sender: FDA-Public Use
  Company Number: IT-ROCHE-3431703

PATIENT
  Age: 65 Year
  Sex: Male
  Weight: 46 kg

DRUGS (13)
  1. PREDNISONE [Suspect]
     Active Substance: PREDNISONE
     Indication: Lymphoma transformation
     Dosage: UNK
     Route: 065
     Dates: start: 20230215, end: 20230405
  2. OBINUTUZUMAB [Suspect]
     Active Substance: OBINUTUZUMAB
     Indication: Lymphoma transformation
     Dosage: 1000 MILLIGRAM(C3D1)
     Route: 042
     Dates: end: 20221201
  3. OBINUTUZUMAB [Suspect]
     Active Substance: OBINUTUZUMAB
     Indication: Follicular lymphoma
     Dosage: 100 MILLIGRAM (C1D1)
     Route: 042
     Dates: start: 20221001, end: 20221201
  4. OBINUTUZUMAB [Suspect]
     Active Substance: OBINUTUZUMAB
     Dosage: 900 MILLIGRAM (C1D2  )
     Route: 042
     Dates: start: 20221015
  5. OBINUTUZUMAB [Suspect]
     Active Substance: OBINUTUZUMAB
     Dosage: 1000 MILLIGRAM (C1D8)
     Route: 042
     Dates: start: 20221021
  6. OBINUTUZUMAB [Suspect]
     Active Substance: OBINUTUZUMAB
     Dosage: 1000 MILLIGRAM(C1D15)
     Route: 042
     Dates: start: 20221028
  7. OBINUTUZUMAB [Suspect]
     Active Substance: OBINUTUZUMAB
     Dosage: 1000 MILLIGRAM (C2D1)
     Route: 042
     Dates: start: 20221104
  8. VINCRISTINE [Suspect]
     Active Substance: VINCRISTINE
     Indication: Lymphoma transformation
     Dosage: UNK
     Route: 065
     Dates: start: 20230215, end: 20230405
  9. BENDAMUSTINE [Suspect]
     Active Substance: BENDAMUSTINE
     Indication: Lymphoma transformation
     Dosage: UNK
     Route: 065
     Dates: start: 20221001, end: 20221201
  10. CYCLOPHOSPHAMIDE [Suspect]
     Active Substance: CYCLOPHOSPHAMIDE
     Indication: Lymphoma transformation
     Dosage: UNK
     Route: 065
     Dates: start: 20230215, end: 20230405
  11. DOXORUBICIN [Suspect]
     Active Substance: DOXORUBICIN
     Indication: Lymphoma transformation
     Dosage: UNK
     Route: 065
     Dates: start: 20230215, end: 20230405
  12. RITUXIMAB [Suspect]
     Active Substance: RITUXIMAB
     Indication: Lymphoma transformation
     Dosage: UNK
     Route: 065
     Dates: start: 20230215, end: 20230405
  13. RITUXIMAB [Suspect]
     Active Substance: RITUXIMAB
     Dosage: UNK
     Route: 065
     Dates: start: 202210, end: 202212

REACTIONS (1)
  - Disease progression [Fatal]

NARRATIVE: CASE EVENT DATE: 20230127
